FAERS Safety Report 5500854-1 (Version None)
Quarter: 2007Q4

REPORT INFORMATION
  Report Type: 
  Country: None (occurrence: None)
  Receive Date: 20071029
  Receipt Date: 20071022
  Transmission Date: 20080405
  Serious: Yes (Other)
  Sender: FDA-Public Use
  Company Number: B0493021A

PATIENT
  Age: 71 Year
  Sex: Male
  Weight: 87 kg

DRUGS (6)
  1. AVANDAMET [Suspect]
     Route: 048
     Dates: start: 20050728
  2. ASPIRIN [Concomitant]
     Indication: MYOCARDIAL INFARCTION
     Route: 048
     Dates: start: 20040401
  3. ATORVASTATIN [Concomitant]
     Route: 048
     Dates: start: 20041001
  4. DIOVAN [Concomitant]
     Indication: HYPERTENSION
     Route: 048
     Dates: start: 20050201
  5. GLICLAZIDE [Concomitant]
     Route: 048
     Dates: start: 20050501
  6. PLENDIL [Concomitant]
     Indication: HYPERTENSION
     Route: 048
     Dates: start: 20040201

REACTIONS (2)
  - ANKLE FRACTURE [None]
  - FIBULA FRACTURE [None]
